FAERS Safety Report 4298514-0 (Version None)
Quarter: 2004Q1

REPORT INFORMATION
  Report Type: 
  Country: None (occurrence: None)
  Receive Date: 20040218
  Receipt Date: 20010212
  Transmission Date: 20041129
  Serious: Yes (Hospitalization)
  Sender: FDA-Public Use
  Company Number: PHHO2001AU01748

PATIENT
  Age: 46 Year
  Sex: Male
  Weight: 95 kg

DRUGS (12)
  1. RAD001OR AZATHIOPRINE [Suspect]
     Indication: LUNG TRANSPLANT
     Dosage: CODE NOT BROKEN
     Route: 048
     Dates: start: 20000216
  2. CYCLOSPORINE [Concomitant]
  3. LISINOPRIL [Concomitant]
  4. PREDNISONE [Suspect]
     Indication: LUNG TRANSPLANT
     Dosage: 5 MG, QD
     Route: 048
     Dates: start: 19970222
  5. FRUSEMIDE [Concomitant]
  6. BUDESONIDE [Concomitant]
  7. RANITIDINE [Concomitant]
  8. ALENDRONATE SODIUM [Concomitant]
  9. CALTRATE [Concomitant]
  10. RAPAMYCIN [Concomitant]
  11. AZATHIOPRINE [Concomitant]
  12. NEORAL [Suspect]
     Indication: LUNG TRANSPLANT
     Dosage: 60 MG, BID
     Route: 048
     Dates: start: 19970222

REACTIONS (4)
  - CELLULITIS [None]
  - IMPAIRED HEALING [None]
  - LIMB INJURY [None]
  - WOUND DEBRIDEMENT [None]
